FAERS Safety Report 21129030 (Version 2)
Quarter: 2022Q3

REPORT INFORMATION
  Report Type: Report from Study
  Country: PH (occurrence: PH)
  Receive Date: 20220725
  Receipt Date: 20220808
  Transmission Date: 20221027
  Serious: Yes (Other)
  Sender: FDA-Public Use
  Company Number: PH-JNJFOC-20220736214

PATIENT
  Age: 69 Year
  Sex: Female

DRUGS (1)
  1. IMBRUVICA [Suspect]
     Active Substance: IBRUTINIB
     Indication: Chronic lymphocytic leukaemia
     Dosage: 3 PILLS ONCE A DAY 2HOURS AFTER BREAKFAST AND 2 HOURS BEFORE LUNCH,
     Route: 048
     Dates: start: 2019

REACTIONS (4)
  - Chronic lymphocytic leukaemia [Unknown]
  - Anaemia [Unknown]
  - Full blood count abnormal [Not Recovered/Not Resolved]
  - Off label use [Unknown]

NARRATIVE: CASE EVENT DATE: 20220701
